FAERS Safety Report 10489945 (Version 1)
Quarter: 2014Q3

REPORT INFORMATION
  Report Type: Spontaneous
  Country: US (occurrence: None)
  Receive Date: 20140815
  Receipt Date: 20140815
  Transmission Date: 20150326
  Serious: Yes (Other)
  Sender: FDA-Public Use
  Company Number: ADR-2014-00569

PATIENT
  Age: 22 Year
  Sex: Female

DRUGS (2)
  1. BACLOFEN INTRATHECAL [Suspect]
     Active Substance: BACLOFEN
     Indication: MUSCLE SPASTICITY
  2. ORAL BACLOFEN [Suspect]
     Active Substance: BACLOFEN

REACTIONS (6)
  - Impaired healing [None]
  - Discomfort [None]
  - Therapeutic response decreased [None]
  - Wound secretion [None]
  - Implant site erosion [None]
  - Wound [None]
